FAERS Safety Report 7401287-3 (Version None)
Quarter: 2011Q2

REPORT INFORMATION
  Report Type: 
  Country: None (occurrence: None)
  Receive Date: 20110407
  Receipt Date: 20110328
  Transmission Date: 20111010
  Serious: Yes (Death)
  Sender: FDA-Public Use
  Company Number: US-BAXTER-2011BH005710

PATIENT
  Age: 81 Year
  Sex: Male

DRUGS (1)
  1. DIANEAL [Suspect]
     Indication: PERITONEAL DIALYSIS
     Route: 033
     Dates: start: 20100301, end: 20110101

REACTIONS (6)
  - RENAL FAILURE [None]
  - CYSTITIS [None]
  - HEPATIC CIRRHOSIS [None]
  - PERITONITIS BACTERIAL [None]
  - CONDITION AGGRAVATED [None]
  - HIP FRACTURE [None]
